FAERS Safety Report 11985029 (Version 2)
Quarter: 2016Q1

REPORT INFORMATION
  Report Type: Report from Study
  Country: DE (occurrence: DE)
  Receive Date: 20160201
  Receipt Date: 20160304
  Transmission Date: 20160526
  Serious: Yes (Life-Threatening, Hospitalization)
  Sender: FDA-Public Use
  Company Number: PHHY2016DE012026

PATIENT
  Sex: Female
  Weight: 87 kg

DRUGS (15)
  1. DECORTIN [Concomitant]
     Active Substance: PREDNISONE
     Dosage: 2.5 MG, UNK
     Route: 065
     Dates: start: 20141028
  2. REVOLADE [Suspect]
     Active Substance: ELTROMBOPAG
     Indication: IMMUNE THROMBOCYTOPENIC PURPURA
     Dosage: 25 MG, QD
     Route: 065
     Dates: start: 20130124
  3. REVOLADE [Suspect]
     Active Substance: ELTROMBOPAG
     Dosage: 25 MG, QOD (EVERY 2 DAYS)
     Route: 065
     Dates: start: 20131122
  4. REVOLADE [Suspect]
     Active Substance: ELTROMBOPAG
     Dosage: 25 MG, QD
     Route: 065
     Dates: start: 20140109
  5. PREDNISOLONE. [Concomitant]
     Active Substance: PREDNISOLONE
     Dosage: 5 MG, UNK
     Route: 065
     Dates: start: 20140923
  6. DECORTIN [Concomitant]
     Active Substance: PREDNISONE
     Dosage: 75 MG, UNK
     Route: 065
     Dates: start: 20141117, end: 201411
  7. DECORTIN [Concomitant]
     Active Substance: PREDNISONE
     Dosage: 20 MG, UNK
     Route: 065
     Dates: start: 20141120, end: 201411
  8. DECORTIN [Concomitant]
     Active Substance: PREDNISONE
     Dosage: 10 MG, UNK
     Route: 065
     Dates: start: 201411, end: 201411
  9. REVOLADE [Suspect]
     Active Substance: ELTROMBOPAG
     Dosage: 50 MG, QD
     Route: 065
     Dates: start: 20131230
  10. DECORTIN [Concomitant]
     Active Substance: PREDNISONE
     Indication: IMMUNE THROMBOCYTOPENIC PURPURA
     Dosage: 5 MG, UNK
     Route: 065
     Dates: start: 20141007
  11. REVOLADE [Suspect]
     Active Substance: ELTROMBOPAG
     Dosage: 50 MG, QD
     Route: 065
     Dates: start: 20140115
  12. REVOLADE [Suspect]
     Active Substance: ELTROMBOPAG
     Dosage: 50 MG, QD
     Route: 065
     Dates: start: 20131015
  13. REVOLADE [Suspect]
     Active Substance: ELTROMBOPAG
     Dosage: 25 MG, QD
     Route: 065
     Dates: start: 20131129
  14. REVOLADE [Suspect]
     Active Substance: ELTROMBOPAG
     Dosage: 75 MG, QD
     Route: 065
     Dates: start: 20140205, end: 201411
  15. PREDNISOLONE. [Concomitant]
     Active Substance: PREDNISOLONE
     Indication: IMMUNE THROMBOCYTOPENIC PURPURA
     Dosage: 10 MG, UNK
     Route: 065
     Dates: start: 20140904

REACTIONS (3)
  - Platelet count decreased [Recovering/Resolving]
  - Myalgia [Recovering/Resolving]
  - Drug ineffective [Recovering/Resolving]

NARRATIVE: CASE EVENT DATE: 201310
